FAERS Safety Report 17027251 (Version 1)
Quarter: 2019Q4

REPORT INFORMATION
  Report Type: Spontaneous
  Country: US (occurrence: US)
  Receive Date: 20191009
  Receipt Date: 20191009
  Transmission Date: 20200122
  Serious: Yes (Hospitalization, Disabling)
  Sender: FDA-Public Use
  Company Number: None

PATIENT
  Age: 78 Year
  Sex: Female
  Weight: 78.8 kg

DRUGS (13)
  1. DEXAMTHASONE [Concomitant]
     Active Substance: DEXAMETHASONE
  2. FLUOXETINE [Concomitant]
     Active Substance: FLUOXETINE HYDROCHLORIDE
  3. ZOFRAN [Concomitant]
     Active Substance: ONDANSETRON HYDROCHLORIDE
  4. GRANISETRON [Concomitant]
     Active Substance: GRANISETRON
  5. TAXOL [Suspect]
     Active Substance: PACLITAXEL
     Dates: end: 20190927
  6. LORATADINE. [Concomitant]
     Active Substance: LORATADINE
  7. VALACYCLOVIR [Concomitant]
     Active Substance: VALACYCLOVIR HYDROCHLORIDE
  8. DIPHENHYDRAMINIE HCL [Concomitant]
  9. FLUTICASONE NASAL SPRAY [Concomitant]
     Active Substance: FLUTICASONE
  10. STOOL SOFTENER (DOCUSATE) [Concomitant]
     Active Substance: DOCUSATE
  11. CARBOPLATIN. [Suspect]
     Active Substance: CARBOPLATIN
     Dates: end: 20190927
  12. IBUPROFEN. [Concomitant]
     Active Substance: IBUPROFEN
  13. LEVOTHYROXINE. [Concomitant]
     Active Substance: LEVOTHYROXINE

REACTIONS (2)
  - Atrial fibrillation [None]
  - Sinus tachycardia [None]

NARRATIVE: CASE EVENT DATE: 20190928
